FAERS Safety Report 11348920 (Version 1)
Quarter: 2015Q3

REPORT INFORMATION
  Report Type: Spontaneous
  Country: FR (occurrence: FR)
  Receive Date: 20150807
  Receipt Date: 20150807
  Transmission Date: 20151125
  Serious: Yes (Hospitalization, Other)
  Sender: FDA-Public Use
  Company Number: FR-ASTRAZENECA-2015SE75322

PATIENT
  Age: 26427 Day
  Sex: Female

DRUGS (14)
  1. TRANXENE T-TAB [Concomitant]
     Active Substance: CLORAZEPATE DIPOTASSIUM
     Dosage: 50 MG/2.5 ML IF NEEDED
     Route: 030
  2. XEROQUEL [Suspect]
     Active Substance: QUETIAPINE FUMARATE
     Indication: BIPOLAR DISORDER
     Route: 048
     Dates: start: 20150205, end: 20150209
  3. EUPANTOL [Concomitant]
     Active Substance: PANTOPRAZOLE SODIUM
     Route: 048
     Dates: start: 20150130, end: 20150213
  4. PLAVIX [Concomitant]
     Active Substance: CLOPIDOGREL BISULFATE
     Route: 048
     Dates: start: 20150223
  5. ZYMAD [Concomitant]
     Active Substance: CHOLECALCIFEROL
     Route: 048
  6. TRANXENE T-TAB [Concomitant]
     Active Substance: CLORAZEPATE DIPOTASSIUM
     Dosage: 1 DF PER DAY IF NEEDED
     Route: 048
     Dates: end: 20150205
  7. URBANYL [Concomitant]
     Active Substance: CLOBAZAM
     Route: 048
     Dates: start: 20150205
  8. XEROQUEL [Suspect]
     Active Substance: QUETIAPINE FUMARATE
     Indication: BIPOLAR DISORDER
     Route: 048
     Dates: start: 201408, end: 20150205
  9. LOVENOX [Concomitant]
     Active Substance: ENOXAPARIN SODIUM
     Dosage: 2000 IU, ONE INJECTION PER DAY
     Route: 058
     Dates: start: 201408, end: 20150213
  10. KARDEGIC [Concomitant]
     Active Substance: ASPIRIN LYSINE
     Route: 048
     Dates: start: 20150129
  11. LANSOYL [Concomitant]
     Active Substance: MINERAL OIL
     Dosage: 2 TO 3 PER DAY
     Route: 048
  12. DOLIPRANE [Concomitant]
     Active Substance: ACETAMINOPHEN
     Dosage: 4 TABLETS PER DAY IF NEEDED
     Route: 048
  13. ANAFRANIL [Concomitant]
     Active Substance: CLOMIPRAMINE HYDROCHLORIDE
     Route: 048
  14. PLAVIX [Concomitant]
     Active Substance: CLOPIDOGREL BISULFATE
     Route: 048
     Dates: start: 20150129, end: 20150206

REACTIONS (12)
  - Hyperthermia [Recovered/Resolved]
  - Colonic pseudo-obstruction [Unknown]
  - Aspartate aminotransferase increased [Unknown]
  - Pyrexia [Recovered/Resolved]
  - Pneumonia [Unknown]
  - Alanine aminotransferase increased [Unknown]
  - C-reactive protein increased [Unknown]
  - Atrial fibrillation [Unknown]
  - Blood creatine phosphokinase increased [Unknown]
  - Aspiration [Unknown]
  - White blood cell count increased [Unknown]
  - Hypovolaemic shock [Unknown]

NARRATIVE: CASE EVENT DATE: 20150206
